FAERS Safety Report 11106174 (Version 1)
Quarter: 2015Q2

REPORT INFORMATION
  Report Type: Spontaneous
  Country: US (occurrence: US)
  Receive Date: 20150512
  Receipt Date: 20150512
  Transmission Date: 20150821
  Serious: Yes (Hospitalization, Other)
  Sender: FDA-Public Use
  Company Number: US-JNJFOC-2010017637

PATIENT
  Age: 89 Year
  Sex: Male
  Weight: 54.43 kg

DRUGS (3)
  1. VISINE [Suspect]
     Active Substance: TETRAHYDROZOLINE HYDROCHLORIDE
     Indication: DRY EYE
     Dosage: DAILY DOSE TEXT: 1 DROP IN ONE EYE ONCE
     Route: 047
     Dates: start: 20100501, end: 20100727
  2. DILTIAZEM [Concomitant]
     Active Substance: DILTIAZEM
     Indication: HYPERTENSION
     Dosage: DAILY DOSE TEXT: 240MG/1 TAB PER DAY
     Route: 048
     Dates: start: 2007
  3. LOVASTATIN. [Concomitant]
     Active Substance: LOVASTATIN
     Indication: BLOOD CHOLESTEROL
     Dosage: DAILY DOSE TEXT: 1 TABLET PER DAY
     Route: 048
     Dates: start: 2007

REACTIONS (2)
  - Blindness [Not Recovered/Not Resolved]
  - Eye irritation [Recovered/Resolved]

NARRATIVE: CASE EVENT DATE: 20100727
